FAERS Safety Report 13775932 (Version 2)
Quarter: 2017Q3

REPORT INFORMATION
  Report Type: Report from Study
  Country: US (occurrence: US)
  Receive Date: 20170720
  Receipt Date: 20170727
  Transmission Date: 20171127
  Serious: Yes (Hospitalization)
  Sender: FDA-Public Use
  Company Number: US-GILEAD-2017-0284098

PATIENT
  Age: 73 Year
  Sex: Female

DRUGS (1)
  1. RANOLAZINE. [Suspect]
     Active Substance: RANOLAZINE
     Indication: ANGINA PECTORIS
     Dosage: 500 MG, UNK
     Route: 048
     Dates: start: 20150717

REACTIONS (5)
  - Unevaluable event [Unknown]
  - Confusional state [Unknown]
  - Electrocardiogram abnormal [Unknown]
  - Therapy cessation [Not Recovered/Not Resolved]
  - Cardiac disorder [Unknown]
